FAERS Safety Report 12559261 (Version 3)
Quarter: 2016Q3

REPORT INFORMATION
  Report Type: Report from Study
  Country: US (occurrence: US)
  Receive Date: 20160715
  Receipt Date: 20160922
  Transmission Date: 20161109
  Serious: Yes (Hospitalization)
  Sender: FDA-Public Use
  Company Number: US-ROCHE-1781618

PATIENT
  Age: 23 Year
  Sex: Female
  Weight: 57.4 kg

DRUGS (21)
  1. SODIUM CHLORIDE. [Concomitant]
     Active Substance: SODIUM CHLORIDE
     Dosage: FROM 12:30 TO 14:30
     Route: 040
     Dates: start: 20160619, end: 20160619
  2. SODIUM CHLORIDE. [Concomitant]
     Active Substance: SODIUM CHLORIDE
     Dosage: FROM 14:30 TO 15:30
     Route: 040
     Dates: start: 20160619, end: 20160619
  3. SODIUM CHLORIDE. [Concomitant]
     Active Substance: SODIUM CHLORIDE
     Dosage: FLUSH INJECTION SYRINGE?6:39, 13:59, 21:44
     Route: 042
     Dates: start: 20160621, end: 20160621
  4. KLOR-CON [Concomitant]
     Active Substance: POTASSIUM CHLORIDE
     Dosage: FROM 22:15 TO 23:44
     Route: 048
     Dates: start: 20160619, end: 20160619
  5. AMOXIL [Concomitant]
     Active Substance: AMOXICILLIN
     Indication: RESPIRATORY TRACT INFECTION
     Dosage: FROM 09:15 TO 21:28
     Route: 048
     Dates: start: 20160621, end: 20160623
  6. LOVENOX [Concomitant]
     Active Substance: ENOXAPARIN SODIUM
     Dosage: AT 17:05
     Route: 058
     Dates: start: 20160620, end: 20160620
  7. VIBRAMYCIN [Concomitant]
     Active Substance: DOXYCYCLINE
     Indication: PNEUMONIA
     Route: 048
     Dates: start: 20160619, end: 20160620
  8. ROBITUSSIN (GUAIFENESIN) [Concomitant]
     Active Substance: GUAIFENESIN
     Indication: COUGH
     Dosage: LIQUID?FROM 10:39 TO 21:28
     Route: 048
     Dates: start: 20160620, end: 20160623
  9. SODIUM CHLORIDE. [Concomitant]
     Active Substance: SODIUM CHLORIDE
     Dosage: FLUSH INJECTION SYRINGE?13:24, 6:22
     Route: 042
     Dates: start: 20160623, end: 20160623
  10. ZOFRAN [Concomitant]
     Active Substance: ONDANSETRON HYDROCHLORIDE
     Indication: PROPHYLAXIS OF NAUSEA AND VOMITING
     Dosage: FROM 22:01 TO 21:28
     Route: 042
     Dates: start: 20160620, end: 20160623
  11. ZOFRAN [Concomitant]
     Active Substance: ONDANSETRON HYDROCHLORIDE
     Indication: PROPHYLAXIS OF NAUSEA AND VOMITING
  12. SODIUM CHLORIDE. [Concomitant]
     Active Substance: SODIUM CHLORIDE
     Dosage: FLUSH INJECTION SYRINGE
     Route: 042
     Dates: start: 20160620, end: 20160620
  13. DERMA SMOOTH FS [Concomitant]
     Indication: PRURITUS
     Dosage: BODY OIL?FROM 22:47 TO 21:28
     Route: 061
     Dates: start: 20160619, end: 20160623
  14. COBIMETINIB [Suspect]
     Active Substance: COBIMETINIB
     Indication: METASTATIC MALIGNANT MELANOMA
     Dosage: MOST RECENT DOSE PRIOR TO THE EVENT ON 18/JUN/2016
     Route: 048
     Dates: start: 20160531, end: 20160618
  15. SODIUM CHLORIDE. [Concomitant]
     Active Substance: SODIUM CHLORIDE
     Dosage: FLUSH INJECTION SYRINGE?5:39, 15:00, 21:08
     Route: 042
     Dates: start: 20160622, end: 20160622
  16. CALCIUM GLUCONATE. [Concomitant]
     Active Substance: CALCIUM GLUCONATE
     Dosage: CALCIU GLUCONATE IN DEXTROSE (2 G/100 ML), IVPB?FROM 15:00 TO 16:11
     Route: 042
     Dates: start: 20160620, end: 20160620
  17. PEPTO-BISMOL [Concomitant]
     Active Substance: BISMUTH SUBSALICYLATE
     Indication: DYSPEPSIA
     Route: 048
     Dates: start: 20160619, end: 20160623
  18. MENTHOL LOZENGE [Concomitant]
     Indication: COUGH
     Dosage: DOSE: 1 LOZENGE?FROM 11:48 TO 21:28
     Route: 002
     Dates: start: 20160622, end: 20160623
  19. VEMURAFENIB [Suspect]
     Active Substance: VEMURAFENIB
     Indication: METASTATIC MALIGNANT MELANOMA
     Dosage: MOST RECENT DOSE PRIOR TO THE EVENT ON 18/JUN/2016
     Route: 048
     Dates: start: 20160531, end: 20160618
  20. SODIUM CHLORIDE. [Concomitant]
     Active Substance: SODIUM CHLORIDE
     Dosage: FLUSH INJECTION SYRINGE
     Route: 042
     Dates: start: 20160620, end: 20160620
  21. KLOR-CON [Concomitant]
     Active Substance: POTASSIUM CHLORIDE
     Dosage: FROM 10:30 TO 10:26
     Route: 048
     Dates: start: 20160621, end: 20160621

REACTIONS (1)
  - Febrile neutropenia [Recovering/Resolving]

NARRATIVE: CASE EVENT DATE: 20160619
